FAERS Safety Report 5684356-8 (Version None)
Quarter: 2008Q1

REPORT INFORMATION
  Report Type: 
  Country: None (occurrence: None)
  Receive Date: 20080328
  Receipt Date: 20080317
  Transmission Date: 20080703
  Serious: Yes (Other)
  Sender: FDA-Public Use
  Company Number: B0512905A

PATIENT
  Age: 77 Year
  Sex: Female

DRUGS (4)
  1. LAMICTAL [Suspect]
     Indication: PARTIAL SEIZURES
     Route: 048
     Dates: start: 20070101
  2. TEGRETOL [Suspect]
     Dosage: 800MG TWICE PER DAY
     Route: 048
     Dates: start: 20060101
  3. CLARITHROMYCIN [Suspect]
     Indication: BRONCHITIS
     Dosage: 500MG TWICE PER DAY
     Route: 048
     Dates: start: 20071229, end: 20080101
  4. DIMETANE [Suspect]
     Indication: BRONCHITIS
     Route: 048
     Dates: start: 20071229, end: 20080101

REACTIONS (9)
  - DIZZINESS [None]
  - DRUG INTERACTION [None]
  - FATIGUE [None]
  - GRAND MAL CONVULSION [None]
  - MALAISE [None]
  - NAUSEA [None]
  - URINARY INCONTINENCE [None]
  - VERTIGO [None]
  - VOMITING [None]
